FAERS Safety Report 25300928 (Version 2)
Quarter: 2025Q2

REPORT INFORMATION
  Report Type: Spontaneous
  Country: US (occurrence: US)
  Receive Date: 20250512
  Receipt Date: 20250520
  Transmission Date: 20250717
  Serious: No
  Sender: Haleon PLC
  Company Number: US-HALEON-2241880

PATIENT
  Sex: Male
  Weight: 77.111 kg

DRUGS (2)
  1. NEXIUM [Suspect]
     Active Substance: ESOMEPRAZOLE MAGNESIUM
     Indication: Gastrooesophageal reflux disease
  2. NEXIUM [Suspect]
     Active Substance: ESOMEPRAZOLE MAGNESIUM
     Indication: Dyspepsia

REACTIONS (4)
  - Drug effective for unapproved indication [Unknown]
  - Incorrect dose administered [Unknown]
  - Off label use [Unknown]
  - Wrong technique in product usage process [Unknown]
